FAERS Safety Report 9132074 (Version 1)
Quarter: 2013Q1

REPORT INFORMATION
  Report Type: Spontaneous
  Country: US (occurrence: US)
  Receive Date: 20130301
  Receipt Date: 20130301
  Transmission Date: 20140127
  Serious: Yes (Death, Other)
  Sender: FDA-Public Use
  Company Number: US-FRI-1000042987

PATIENT
  Age: 60 Year
  Sex: Female

DRUGS (3)
  1. VIIBRYD [Suspect]
  2. CELEXA [Concomitant]
  3. TRAMADOL [Concomitant]

REACTIONS (1)
  - Death [Fatal]
